FAERS Safety Report 7434758-4 (Version None)
Quarter: 2011Q2

REPORT INFORMATION
  Report Type: 
  Country: None (occurrence: None)
  Receive Date: 20110415
  Receipt Date: 20110411
  Transmission Date: 20111010
  Serious: Yes (Hospitalization)
  Sender: FDA-Public Use
  Company Number: 2011SP016644

PATIENT
  Age: 44 Year
  Sex: Male

DRUGS (2)
  1. NEORAL [Suspect]
     Indication: DERMATITIS ATOPIC
     Dosage: PO
     Route: 048
     Dates: start: 20100215, end: 20110105
  2. CLARITIN [Suspect]
     Indication: PRURITUS
     Dosage: 10 MG;QD;PO
     Route: 048
     Dates: start: 20100215, end: 20110105

REACTIONS (2)
  - HEPATIC FUNCTION ABNORMAL [None]
  - JAUNDICE [None]
